FAERS Safety Report 8321861-X (Version None)
Quarter: 2012Q2

REPORT INFORMATION
  Report Type: 
  Country: None (occurrence: None)
  Receive Date: 20120430
  Receipt Date: 20120418
  Transmission Date: 20120825
  Serious: Yes (Hospitalization, Congenital Anomaly)
  Sender: FDA-Public Use
  Company Number: FR-VIIV HEALTHCARE LIMITED-B0796316A

PATIENT
  Sex: Female

DRUGS (1)
  1. RETROVIR [Suspect]
     Indication: PROPHYLAXIS AGAINST HIV INFECTION
     Route: 064
     Dates: start: 19970101, end: 19970101

REACTIONS (14)
  - ATAXIA [None]
  - FOETAL EXPOSURE DURING PREGNANCY [None]
  - ABNORMAL BEHAVIOUR [None]
  - RESTING TREMOR [None]
  - INTENTION TREMOR [None]
  - HYPOKINESIA [None]
  - NERVOUS SYSTEM DISORDER [None]
  - ENCEPHALOPATHY [None]
  - MENTAL RETARDATION [None]
  - DYSMORPHISM [None]
  - BODY HEIGHT BELOW NORMAL [None]
  - EPILEPSY [None]
  - DEVELOPMENTAL DELAY [None]
  - CEREBELLAR SYNDROME [None]
